FAERS Safety Report 9450324 (Version 2)
Quarter: 2013Q3

REPORT INFORMATION
  Report Type: Report from Study
  Country: BR (occurrence: BR)
  Receive Date: 20130809
  Receipt Date: 20130906
  Transmission Date: 20140515
  Serious: Yes (Hospitalization, Other)
  Sender: FDA-Public Use
  Company Number: PHHY2013BR085770

PATIENT
  Age: 94 Year
  Sex: Male
  Weight: 59 kg

DRUGS (3)
  1. ACLASTA [Suspect]
     Indication: OSTEOPOROSIS
     Dosage: 5 MG, UNK
     Route: 042
     Dates: start: 201305
  2. NAPRIX A [Concomitant]
     Indication: HYPERTENSION
     Dosage: 10 MG A DAY
     Route: 048
  3. LISADOR [Concomitant]
     Indication: SPINAL PAIN
     Dosage: 1 TABLET A DAY
     Route: 048

REACTIONS (2)
  - Cerebrovascular accident [Recovered/Resolved]
  - Syncope [Recovered/Resolved]
